FAERS Safety Report 7469222-X (Version None)
Quarter: 2011Q2

REPORT INFORMATION
  Report Type: 
  Country: None (occurrence: None)
  Receive Date: 20110506
  Receipt Date: 20110506
  Transmission Date: 20111010
  Serious: Yes (Other)
  Sender: FDA-Public Use
  Company Number: None

PATIENT
  Sex: Male

DRUGS (1)
  1. ALPRAZOLAM [Suspect]
     Indication: ANXIETY
     Dosage: 1 MG TAB 2 TAB X 4 PER DAY ORAL
     Route: 048
     Dates: start: 20110411, end: 20110421

REACTIONS (2)
  - PRODUCT COLOUR ISSUE [None]
  - NAUSEA [None]
